FAERS Safety Report 11261735 (Version 1)
Quarter: 2015Q3

REPORT INFORMATION
  Report Type: Spontaneous
  Country: IT (occurrence: IT)
  Receive Date: 20150710
  Receipt Date: 20150710
  Transmission Date: 20151125
  Serious: Yes (Hospitalization)
  Sender: FDA-Public Use
  Company Number: IT-WATSON-2015-12408

PATIENT
  Age: 51 Year
  Sex: Female

DRUGS (3)
  1. CIPRALEX [Suspect]
     Active Substance: ESCITALOPRAM OXALATE
     Indication: PRODUCT USED FOR UNKNOWN INDICATION
     Dosage: 280 MG, TOTAL (28 TABLETS)
     Route: 048
     Dates: start: 20150531, end: 20150531
  2. BENEXOL                            /00176001/ [Suspect]
     Active Substance: CYANOCOBALAMIN\PYRIDOXINE\THIAMINE
     Indication: PRODUCT USED FOR UNKNOWN INDICATION
     Dosage: 6 DF, TOTAL (6 TABLETS)
     Route: 048
     Dates: start: 20150531, end: 20150531
  3. LORAZEPAM. [Suspect]
     Active Substance: LORAZEPAM
     Indication: PRODUCT USED FOR UNKNOWN INDICATION
     Dosage: 20 MG, TOTAL (20 TABLETS)
     Route: 048
     Dates: start: 20150531, end: 20150531

REACTIONS (4)
  - Drug abuse [Unknown]
  - Electrocardiogram ST segment elevation [Unknown]
  - Electrocardiogram QT prolonged [Unknown]
  - Overdose [Unknown]

NARRATIVE: CASE EVENT DATE: 20150531
